FAERS Safety Report 21073540 (Version 1)
Quarter: 2022Q3

REPORT INFORMATION
  Report Type: Spontaneous
  Country: IT (occurrence: IT)
  Receive Date: 20220713
  Receipt Date: 20220713
  Transmission Date: 20221026
  Serious: Yes (Hospitalization)
  Sender: FDA-Public Use
  Company Number: IT-AMGEN-ITASP2022116371

PATIENT
  Age: 55 Year
  Sex: Female

DRUGS (3)
  1. BEVACIZUMAB [Suspect]
     Active Substance: BEVACIZUMAB
     Indication: Colorectal cancer
     Route: 065
  2. FLUOROURACIL\IRINOTECAN\LEUCOVORIN\OXALIPLATIN [Concomitant]
     Active Substance: FLUOROURACIL\IRINOTECAN\LEUCOVORIN\OXALIPLATIN
     Indication: Colorectal cancer
  3. FLUOROURACIL\LEUCOVORIN [Concomitant]
     Active Substance: FLUOROURACIL\LEUCOVORIN
     Indication: Colorectal cancer

REACTIONS (1)
  - Colorectal cancer metastatic [Recovered/Resolved]
